FAERS Safety Report 11841430 (Version 1)
Quarter: 2015Q4

REPORT INFORMATION
  Report Type: Spontaneous
  Country: ZA (occurrence: ZA)
  Receive Date: 20151216
  Receipt Date: 20151216
  Transmission Date: 20160305
  Serious: Yes (Hospitalization, Other)
  Sender: FDA-Public Use
  Company Number: ZA-PFIZER INC-2015415476

PATIENT
  Age: 67 Year
  Sex: Male

DRUGS (5)
  1. EXSIRA [Suspect]
     Active Substance: DESVENLAFAXINE SUCCINATE
     Indication: MAJOR DEPRESSION
     Dosage: 50 MG, SINGLE
     Dates: start: 20151125, end: 2015
  2. VENLOR XR [Suspect]
     Active Substance: VENLAFAXINE HYDROCHLORIDE
     Indication: MAJOR DEPRESSION
     Dosage: 75 MG, 1X/DAY (MANE)
     Dates: start: 20151124, end: 20151124
  3. MOLIPAXIN [Suspect]
     Active Substance: TRAZODONE HYDROCHLORIDE
     Indication: ANXIETY
  4. MOLIPAXIN [Suspect]
     Active Substance: TRAZODONE HYDROCHLORIDE
     Indication: MAJOR DEPRESSION
     Dosage: 100 MG , NOCTE
     Dates: end: 2015
  5. XANOR SR [Concomitant]
     Active Substance: ALPRAZOLAM
     Dosage: 1 MG, 2X/DAY (BD)
     Route: 048

REACTIONS (6)
  - Condition aggravated [Recovered/Resolved]
  - Anticholinergic syndrome [Unknown]
  - Prostatomegaly [None]
  - Urinary retention [Recovered/Resolved]
  - Vision blurred [None]
  - Constipation [None]

NARRATIVE: CASE EVENT DATE: 20151124
